FAERS Safety Report 18540688 (Version 1)
Quarter: 2020Q4

REPORT INFORMATION
  Report Type: Not Available
  Country: None (occurrence: None)
  Receive Date: 20201124
  Receipt Date: 20201124
  Transmission Date: 20210114
  Serious: Yes (Other)
  Sender: FDA-Public Use
  Company Number: US-AKORN PHARMACEUTICALS-2020AKN00444

PATIENT
  Age: 15 Year
  Sex: Female
  Weight: 91 kg

DRUGS (1)
  1. MYORISAN [Suspect]
     Active Substance: ISOTRETINOIN

REACTIONS (5)
  - Acne [Not Recovered/Not Resolved]
  - Blood triglycerides increased [Unknown]
  - Hidradenitis [Not Recovered/Not Resolved]
  - Treatment noncompliance [Unknown]
  - Metabolic syndrome [Unknown]

NARRATIVE: CASE EVENT DATE: 20200430
